FAERS Safety Report 24234813 (Version 1)
Quarter: 2024Q3

REPORT INFORMATION
  Report Type: Spontaneous
  Country: US (occurrence: US)
  Receive Date: 20240821
  Receipt Date: 20240821
  Transmission Date: 20241016
  Serious: No
  Sender: PFIZER
  Company Number: US-PFIZER INC-202400239752

PATIENT
  Age: 64 Year
  Sex: Female

DRUGS (1)
  1. INLYTA [Suspect]
     Active Substance: AXITINIB
     Dosage: 2 MG, 2X/DAY (2 TABLETS TWICE A DAY)
     Route: 048
     Dates: start: 20240802

REACTIONS (11)
  - Fatigue [Unknown]
  - Epistaxis [Recovered/Resolved]
  - Pain [Unknown]
  - Arthralgia [Unknown]
  - Myalgia [Unknown]
  - Headache [Recovered/Resolved]
  - Dyspepsia [Recovered/Resolved]
  - Nausea [Recovered/Resolved]
  - Balance disorder [Recovered/Resolved]
  - Brain fog [Recovered/Resolved]
  - Dysphonia [Unknown]
